FAERS Safety Report 5755055-9 (Version None)
Quarter: 2008Q2

REPORT INFORMATION
  Report Type: 
  Country: None (occurrence: None)
  Receive Date: 20080528
  Receipt Date: 20080528
  Transmission Date: 20081010
  Serious: No
  Sender: FDA-Public Use
  Company Number: None

PATIENT

DRUGS (1)
  1. SINGULAIR [Suspect]

REACTIONS (8)
  - ABNORMAL BEHAVIOUR [None]
  - ANOREXIA [None]
  - CRYING [None]
  - DEPRESSED MOOD [None]
  - MOOD SWINGS [None]
  - SELF-INDUCED VOMITING [None]
  - SELF-INJURIOUS IDEATION [None]
  - WEIGHT DECREASED [None]
